FAERS Safety Report 16750224 (Version 4)
Quarter: 2019Q4

REPORT INFORMATION
  Report Type: Spontaneous
  Country: US (occurrence: US)
  Receive Date: 20190828
  Receipt Date: 20191216
  Transmission Date: 20200122
  Serious: Yes (Other)
  Sender: FDA-Public Use
  Company Number: US-PFIZER INC-2019341054

PATIENT
  Age: 72 Year
  Sex: Male
  Weight: 97 kg

DRUGS (2)
  1. LYRICA [Suspect]
     Active Substance: PREGABALIN
     Indication: SLEEP DISORDER
     Dosage: 200 MG, 1X/DAY (EVERY NIGHT)
     Route: 048
  2. LYRICA [Suspect]
     Active Substance: PREGABALIN
     Indication: NEURALGIA
     Dosage: 200 MG, DAILY
     Route: 048

REACTIONS (2)
  - Pain [Not Recovered/Not Resolved]
  - Drug dependence [Not Recovered/Not Resolved]
